FAERS Safety Report 8052565-9 (Version None)
Quarter: 2012Q1

REPORT INFORMATION
  Report Type: 
  Country: None (occurrence: None)
  Receive Date: 20120118
  Receipt Date: 20120112
  Transmission Date: 20120608
  Serious: Yes (Hospitalization, Other)
  Sender: FDA-Public Use
  Company Number: AU-ROXANE LABORATORIES, INC.-2012-RO-00467RO

PATIENT
  Age: 39 Year
  Sex: Female

DRUGS (2)
  1. DEXAMETHASONE TAB [Suspect]
     Indication: METASTASES TO CENTRAL NERVOUS SYSTEM
     Dosage: 16 MG
  2. RIFAMPICIN [Suspect]
     Indication: PNEUMONIA LEGIONELLA

REACTIONS (7)
  - LUNG ABSCESS [None]
  - PULMONARY PNEUMATOCELE [None]
  - PYOPNEUMOTHORAX [None]
  - VOMITING [None]
  - PNEUMONIA LEGIONELLA [None]
  - NAUSEA [None]
  - LEGIONELLA TEST [None]
